FAERS Safety Report 19041909 (Version 2)
Quarter: 2021Q3

REPORT INFORMATION
  Report Type: Report from Study
  Country: DE (occurrence: DE)
  Receive Date: 20210322
  Receipt Date: 20210825
  Transmission Date: 20211014
  Serious: Yes (Life-Threatening, Hospitalization, Other)
  Sender: FDA-Public Use
  Company Number: DE-SHIRE-DE201922146

PATIENT
  Sex: Female

DRUGS (26)
  1. TEDUGLUTIDE [Suspect]
     Active Substance: TEDUGLUTIDE
     Dosage: 1.3 MILLIGRAM (0.03 MG KG DAILY DOSE, 7 DOSES PER WEEK), 1X/DAY:QD
     Route: 065
     Dates: start: 20170314, end: 20170911
  2. TEDUGLUTIDE [Suspect]
     Active Substance: TEDUGLUTIDE
     Dosage: 1.2 MILLIGRAM (0.03 MG KG DAILY DOSE, 7 DOSES PER WEEK), 1X/DAY:QD
     Route: 065
     Dates: start: 20171027, end: 201807
  3. TEDUGLUTIDE [Suspect]
     Active Substance: TEDUGLUTIDE
     Dosage: 1.2 MILLIGRAM, (0.03 MG KG DAILY DOSE, 7 DOSES PER WEEK)1X/DAY:QD
     Route: 065
     Dates: start: 201905, end: 201907
  4. TEDUGLUTIDE [Suspect]
     Active Substance: TEDUGLUTIDE
     Dosage: 1.2 MILLIGRAM, (0.03 MG KG DAILY DOSE, 7 DOSES PER WEEK)1X/DAY:QD
     Route: 065
     Dates: start: 201905, end: 201907
  5. CEFTRIAXONE. [Concomitant]
     Active Substance: CEFTRIAXONE
     Indication: URINARY TRACT INFECTION
     Dosage: UNK
     Route: 065
  6. TEDUGLUTIDE [Suspect]
     Active Substance: TEDUGLUTIDE
     Indication: SHORT-BOWEL SYNDROME
     Dosage: 2.5 MILLIGRAM ((0.05 MG KG DAILY DOSE, 7 DOSES PER WEEK), 1X/DAY:QD
     Route: 065
     Dates: start: 20160831, end: 20170224
  7. OPIUM TINCTURE [Concomitant]
     Active Substance: MORPHINE
     Indication: FUNCTIONAL GASTROINTESTINAL DISORDER
     Dosage: UNK
     Route: 065
  8. TEDUGLUTIDE [Suspect]
     Active Substance: TEDUGLUTIDE
     Dosage: 1.3 MILLIGRAM (0.03 MG KG DAILY DOSE, 7 DOSES PER WEEK), 1X/DAY:QD
     Route: 065
     Dates: start: 20170314, end: 20170911
  9. TEDUGLUTIDE [Suspect]
     Active Substance: TEDUGLUTIDE
     Dosage: 1.4 MILLIGRAM (0.03 MG KG DAILY DOSE, 7 DOSES PER WEEK), 1X/DAY:QD
     Route: 065
     Dates: start: 201807, end: 201902
  10. TEDUGLUTIDE [Suspect]
     Active Substance: TEDUGLUTIDE
     Dosage: 1.3 MILLIGRAM (0.03 MG KG DAILY DOSE, 7 DOSES PER WEEK), 1X/DAY:QD
     Route: 065
     Dates: start: 20170314, end: 20170911
  11. TEDUGLUTIDE [Suspect]
     Active Substance: TEDUGLUTIDE
     Dosage: 1.2 MILLIGRAM (0.03 MG KG DAILY DOSE, 7 DOSES PER WEEK), 1X/DAY:QD
     Route: 065
     Dates: start: 20171027, end: 201807
  12. TEDUGLUTIDE [Suspect]
     Active Substance: TEDUGLUTIDE
     Dosage: 1.2 MILLIGRAM, (0.03 MG KG DAILY DOSE, 7 DOSES PER WEEK)1X/DAY:QD
     Route: 065
     Dates: start: 201905, end: 201907
  13. TEDUGLUTIDE [Suspect]
     Active Substance: TEDUGLUTIDE
     Dosage: 1.3 MILLIGRAM (0.03 MG KG DAILY DOSE, 7 DOSES PER WEEK), 1X/DAY:QD
     Route: 065
     Dates: start: 20170314, end: 20170911
  14. TEDUGLUTIDE [Suspect]
     Active Substance: TEDUGLUTIDE
     Dosage: 1.4 MILLIGRAM (0.03 MG KG DAILY DOSE, 7 DOSES PER WEEK), 1X/DAY:QD
     Route: 065
     Dates: start: 201807, end: 201902
  15. CASPOFUNGIN [Concomitant]
     Active Substance: CASPOFUNGIN
     Indication: FUNGAL SEPSIS
     Dosage: UNK
     Route: 065
  16. DIFLUCAN [Concomitant]
     Active Substance: FLUCONAZOLE
     Indication: FUNGAL SEPSIS
     Dosage: UNK
     Route: 065
  17. TEDUGLUTIDE [Suspect]
     Active Substance: TEDUGLUTIDE
     Indication: SHORT-BOWEL SYNDROME
     Dosage: 2.5 MILLIGRAM ((0.05 MG KG DAILY DOSE, 7 DOSES PER WEEK), 1X/DAY:QD
     Route: 065
     Dates: start: 20160831, end: 20170224
  18. TEDUGLUTIDE [Suspect]
     Active Substance: TEDUGLUTIDE
     Indication: SHORT-BOWEL SYNDROME
     Dosage: 2.5 MILLIGRAM ((0.05 MG KG DAILY DOSE, 7 DOSES PER WEEK), 1X/DAY:QD
     Route: 065
     Dates: start: 20160831, end: 20170224
  19. TEDUGLUTIDE [Suspect]
     Active Substance: TEDUGLUTIDE
     Dosage: 1.2 MILLIGRAM (0.03 MG KG DAILY DOSE, 7 DOSES PER WEEK), 1X/DAY:QD
     Route: 065
     Dates: start: 20171027, end: 201807
  20. TEDUGLUTIDE [Suspect]
     Active Substance: TEDUGLUTIDE
     Dosage: 1.2 MILLIGRAM (0.03 MG KG DAILY DOSE, 7 DOSES PER WEEK), 1X/DAY:QD
     Route: 065
     Dates: start: 20171027, end: 201807
  21. TEDUGLUTIDE [Suspect]
     Active Substance: TEDUGLUTIDE
     Dosage: 1.4 MILLIGRAM (0.03 MG KG DAILY DOSE, 7 DOSES PER WEEK), 1X/DAY:QD
     Route: 065
     Dates: start: 201807, end: 201902
  22. TEDUGLUTIDE [Suspect]
     Active Substance: TEDUGLUTIDE
     Dosage: 1.4 MILLIGRAM (0.03 MG KG DAILY DOSE, 7 DOSES PER WEEK), 1X/DAY:QD
     Route: 065
     Dates: start: 201807, end: 201902
  23. IMIPENEM [Concomitant]
     Active Substance: IMIPENEM
     Indication: ATYPICAL PNEUMONIA
     Dosage: UNK
     Route: 065
  24. TEDUGLUTIDE [Suspect]
     Active Substance: TEDUGLUTIDE
     Indication: SHORT-BOWEL SYNDROME
     Dosage: 2.5 MILLIGRAM ((0.05 MG KG DAILY DOSE, 7 DOSES PER WEEK), 1X/DAY:QD
     Route: 065
     Dates: start: 20160831, end: 20170224
  25. TEDUGLUTIDE [Suspect]
     Active Substance: TEDUGLUTIDE
     Dosage: 1.2 MILLIGRAM, (0.03 MG KG DAILY DOSE, 7 DOSES PER WEEK)1X/DAY:QD
     Route: 065
     Dates: start: 201905, end: 201907
  26. VITAMIN B12 [Concomitant]
     Active Substance: CYANOCOBALAMIN
     Indication: VITAMIN SUPPLEMENTATION
     Dosage: UNK
     Route: 065

REACTIONS (6)
  - Urinary tract infection [Unknown]
  - Anaemia [Unknown]
  - Fungal sepsis [Recovered/Resolved]
  - Hypokalaemia [Recovered/Resolved]
  - Dehydration [Recovered/Resolved]
  - Atypical pneumonia [Unknown]

NARRATIVE: CASE EVENT DATE: 20190613
